FAERS Safety Report 13952096 (Version 2)
Quarter: 2017Q4

REPORT INFORMATION
  Report Type: Spontaneous
  Country: FR (occurrence: FR)
  Receive Date: 20170910
  Receipt Date: 20171002
  Transmission Date: 20180320
  Serious: Yes (Death)
  Sender: FDA-Public Use
  Company Number: FR-ROCHE-1990112

PATIENT
  Age: 64 Year
  Sex: Male

DRUGS (18)
  1. SERESTA [Suspect]
     Active Substance: OXAZEPAM
     Indication: AGITATION
     Route: 048
     Dates: start: 20170818, end: 20170818
  2. LIORESAL [Concomitant]
     Active Substance: BACLOFEN
     Indication: ALCOHOLISM
     Route: 048
     Dates: start: 201708, end: 20170818
  3. METFORMIN [Concomitant]
     Active Substance: METFORMIN HYDROCHLORIDE
     Dosage: LONG-TERM TREATMENT
     Route: 048
  4. VITAMIN B1 [Concomitant]
     Active Substance: THIAMINE HYDROCHLORIDE
     Dosage: BAYER?LONG-TERM TREATMENT
     Route: 048
  5. VITAMIN B6 [Concomitant]
     Active Substance: PYRIDOXINE HYDROCHLORIDE
     Dosage: BAYER?LONG-TERM TREATMENT
     Route: 048
  6. ANAFRANIL [Concomitant]
     Active Substance: CLOMIPRAMINE HYDROCHLORIDE
     Dosage: LONG-TERM TREATMENT
     Route: 048
  7. VALIUM [Suspect]
     Active Substance: DIAZEPAM
     Indication: AGITATION
     Dosage: EVERY 3 HOURS UP TO 6 TIMES/24H MAXIMUM
     Route: 048
     Dates: start: 20170818, end: 20170818
  8. LOXAPAC [Suspect]
     Active Substance: LOXAPINE SUCCINATE
     Indication: AGITATION
     Route: 048
     Dates: start: 20170818, end: 20170818
  9. SELINCRO [Concomitant]
     Active Substance: NALMEFENE HYDROCHLORIDE DIHYDRATE
     Indication: ALCOHOLISM
     Route: 048
     Dates: start: 201708, end: 20170818
  10. BISOPROLOL HEMIFUMARATE [Concomitant]
     Active Substance: BISOPROLOL FUMARATE
     Dosage: LONG-TERM TREATMENT
     Route: 048
  11. PROZAC [Concomitant]
     Active Substance: FLUOXETINE HYDROCHLORIDE
     Dosage: LONG-TERM TREATMENT
     Route: 048
  12. JANUVIA [Concomitant]
     Active Substance: SITAGLIPTIN PHOSPHATE
     Dosage: LONG-TERM TREATMENT
     Route: 048
  13. LYRICA [Concomitant]
     Active Substance: PREGABALIN
     Route: 048
  14. LOXEN LP [Concomitant]
     Active Substance: NICARDIPINE HYDROCHLORIDE
     Dosage: LONG-TERM TREATMENT
     Route: 048
  15. NICOPATCH [Concomitant]
     Active Substance: NICOTINE
     Dosage: 21MG/24H, SKIN PATCH WITH 52.?5MG / 30 CM2
     Route: 062
     Dates: start: 20170818
  16. TERCIAN [Suspect]
     Active Substance: CYAMEMAZINE
     Indication: AGITATION
     Route: 048
     Dates: start: 20170818, end: 20170818
  17. PLAVIX [Concomitant]
     Active Substance: CLOPIDOGREL BISULFATE
     Route: 048
  18. KARDEGIC [Concomitant]
     Active Substance: ASPIRIN DL-LYSINE
     Dosage: LONG-TERM TREATMENT
     Route: 048

REACTIONS (5)
  - Coma [Fatal]
  - Pneumonia aspiration [Fatal]
  - Bronchiectasis [Fatal]
  - Respiratory distress [Fatal]
  - Dyspnoea [Fatal]

NARRATIVE: CASE EVENT DATE: 20170819
